FAERS Safety Report 12905313 (Version 6)
Quarter: 2017Q2

REPORT INFORMATION
  Report Type: Spontaneous
  Country: GB (occurrence: GB)
  Receive Date: 20161103
  Receipt Date: 20170523
  Transmission Date: 20170830
  Serious: Yes (Hospitalization)
  Sender: FDA-Public Use
  Company Number: GB-009507513-1611JPN000495

PATIENT
  Age: 79 Year
  Sex: Female

DRUGS (25)
  1. DEXAMETHASONE. [Suspect]
     Active Substance: DEXAMETHASONE
     Dosage: UNK
     Route: 048
     Dates: start: 20160901, end: 20160922
  2. REVLIMID [Suspect]
     Active Substance: LENALIDOMIDE
     Dosage: 25 MG, 1 IN 1 D
     Route: 048
     Dates: start: 20160901, end: 20160920
  3. SIMVASTATIN. [Concomitant]
     Active Substance: SIMVASTATIN
     Indication: TYPE 2 DIABETES MELLITUS
     Dosage: 20 MG, 1 IN 1 D
     Route: 048
  4. DEXAMETHASONE. [Suspect]
     Active Substance: DEXAMETHASONE
     Dosage: 20 MG, QW, ON DAYS 1, 8, 15, 22
     Route: 048
     Dates: start: 20160121, end: 20160212
  5. DEXAMETHASONE. [Suspect]
     Active Substance: DEXAMETHASONE
     Dosage: UNK
     Route: 048
     Dates: start: 20160609, end: 20160630
  6. REVLIMID [Suspect]
     Active Substance: LENALIDOMIDE
     Dosage: DAILY DOSE 300 MILLIGRAM (25 MG, 1 IN 1 D)
     Route: 048
     Dates: start: 20160414, end: 2016
  7. REVLIMID [Suspect]
     Active Substance: LENALIDOMIDE
     Dosage: 25 MG, 1 IN 1 D
     Route: 048
     Dates: start: 20160317, end: 2016
  8. LERCANIDIPINE [Concomitant]
     Active Substance: LERCANIDIPINE
     Indication: HYPERTENSION
     Dosage: 20 MG, 1 IN 1 D
     Route: 048
  9. DEXAMETHASONE. [Suspect]
     Active Substance: DEXAMETHASONE
     Dosage: UNK
     Route: 048
     Dates: start: 20160707, end: 20160728
  10. REVLIMID [Suspect]
     Active Substance: LENALIDOMIDE
     Dosage: DAILY DOSE 12 MILLIGRAM (25 MG, 1 IN 1 D)
     Route: 048
     Dates: start: 20160804, end: 2016
  11. REVLIMID [Suspect]
     Active Substance: LENALIDOMIDE
     Dosage: DAILY DOSE 20 MILLIGRAM (25 MG, 1 IN 1 D)
     Route: 048
     Dates: start: 20160609, end: 2016
  12. GAVISCON (ALGINIC ACID (+) ALUMINUM HYDROXIDE (+) MAGNESIUM TRISILICAT [Concomitant]
     Active Substance: ALGINIC ACID\ALUMINUM HYDROXIDE\MAGNESIUM TRISILICATE
     Indication: DYSPEPSIA
     Dosage: UNK
     Route: 048
     Dates: start: 201602
  13. DEXAMETHASONE. [Suspect]
     Active Substance: DEXAMETHASONE
     Indication: PLASMA CELL MYELOMA
     Dosage: UNK
     Route: 048
     Dates: start: 20160218, end: 20160310
  14. DEXAMETHASONE. [Suspect]
     Active Substance: DEXAMETHASONE
     Dosage: UNK
     Route: 048
     Dates: start: 20160317, end: 20160407
  15. DEXAMETHASONE. [Suspect]
     Active Substance: DEXAMETHASONE
     Dosage: DAILY DOSE 40 MILLIGRAM
     Route: 048
     Dates: start: 20160414, end: 20160505
  16. REVLIMID [Suspect]
     Active Substance: LENALIDOMIDE
     Indication: PLASMA CELL MYELOMA
     Dosage: DAILY DOSE 20 MILLIGRAM  (25 MG, 1 IN 1 D)
     Route: 048
     Dates: start: 20160707, end: 2016
  17. REVLIMID [Suspect]
     Active Substance: LENALIDOMIDE
     Dosage: 25 MG, 1 IN 1 D
     Route: 048
     Dates: start: 20160121, end: 20160211
  18. ASPIRIN. [Concomitant]
     Active Substance: ASPIRIN
     Indication: HYPERTENSION
     Dosage: 75 MG, 1 IN 1 D
     Route: 048
  19. DEXAMETHASONE. [Suspect]
     Active Substance: DEXAMETHASONE
     Dosage: UNK
     Route: 048
     Dates: start: 20160512, end: 20160602
  20. REVLIMID [Suspect]
     Active Substance: LENALIDOMIDE
     Dosage: 25 MG, 1 IN 1 D
     Route: 048
     Dates: start: 20160218, end: 2016
  21. REVLIMID [Suspect]
     Active Substance: LENALIDOMIDE
     Dosage: DAILY DOSE 75 MILLIGRAM (25 MG, 1 IN 1 D)
     Route: 048
     Dates: start: 20160512, end: 2016
  22. RANITIDINE. [Concomitant]
     Active Substance: RANITIDINE
     Indication: GASTROINTESTINAL DISORDER
     Dosage: 150 MG, 2 IN 1 D
     Route: 048
  23. DEXAMETHASONE. [Suspect]
     Active Substance: DEXAMETHASONE
     Dosage: UNK
     Route: 048
     Dates: start: 20160804, end: 20160825
  24. CANDESARTAN. [Concomitant]
     Active Substance: CANDESARTAN
     Indication: HYPERTENSION
     Dosage: 12 MG, 1 IN 1 D
     Route: 048
  25. DEXAMETHASONE. [Suspect]
     Active Substance: DEXAMETHASONE
     Dosage: UNK
     Route: 048
     Dates: start: 2016

REACTIONS (1)
  - Dyspnoea [Recovered/Resolved]

NARRATIVE: CASE EVENT DATE: 20161006
